FAERS Safety Report 6647730-9 (Version None)
Quarter: 2010Q1

REPORT INFORMATION
  Report Type: 
  Country: None (occurrence: None)
  Receive Date: 20100323
  Receipt Date: 20100323
  Transmission Date: 20100710
  Serious: Yes (Disabling)
  Sender: FDA-Public Use
  Company Number: None

PATIENT
  Sex: Female
  Weight: 54.4316 kg

DRUGS (2)
  1. HUMIRA [Suspect]
     Indication: OSTEOARTHRITIS
     Dosage: PENCIL DOSE 1 EVERY 2 WK
     Dates: start: 20090602
  2. HUMIRA [Suspect]
     Indication: OSTEOARTHRITIS
     Dosage: PENCIL DOSE 1 EVERY 2 WK
     Dates: start: 20090616

REACTIONS (11)
  - AGEUSIA [None]
  - BUCCAL MUCOSAL ROUGHENING [None]
  - DRY MOUTH [None]
  - DRY THROAT [None]
  - DYSGEUSIA [None]
  - DYSPHONIA [None]
  - FEELING ABNORMAL [None]
  - GLOSSODYNIA [None]
  - OROPHARYNGEAL PAIN [None]
  - TONGUE DISORDER [None]
  - WEIGHT DECREASED [None]
